FAERS Safety Report 5454071-4 (Version None)
Quarter: 2007Q3

REPORT INFORMATION
  Report Type: 
  Country: None (occurrence: None)
  Receive Date: 20070917
  Receipt Date: 20070913
  Transmission Date: 20080115
  Serious: Yes (Death, Hospitalization)
  Sender: FDA-Public Use
  Company Number: ZA-ASTRAZENECA-2007SE04882

PATIENT
  Age: 79 Year
  Sex: Female
  Weight: 60 kg

DRUGS (5)
  1. CRESTOR [Suspect]
     Indication: ISCHAEMIC HEART DISEASE PROPHYLAXIS
     Route: 048
     Dates: start: 20070812, end: 20070831
  2. PLAVIX [Concomitant]
     Indication: STENT PLACEMENT
     Route: 048
     Dates: start: 20070812, end: 20070831
  3. ASPIRIN [Concomitant]
     Indication: CARDIOVASCULAR DISORDER
     Dates: start: 20070812, end: 20070831
  4. PREXUM [Concomitant]
     Dates: start: 20070812, end: 20070831
  5. PERINDOPRIL ERBUMINE [Concomitant]
     Dates: start: 20070812, end: 20070831

REACTIONS (4)
  - ACIDOSIS [None]
  - MYOGLOBINURIA [None]
  - MYOSITIS [None]
  - RENAL FAILURE [None]
